FAERS Safety Report 17847446 (Version 1)
Quarter: 2020Q2

REPORT INFORMATION
  Report Type: Spontaneous
  Country: HU (occurrence: HU)
  Receive Date: 20200601
  Receipt Date: 20200601
  Transmission Date: 20200714
  Serious: Yes (Other)
  Sender: FDA-Public Use
  Company Number: HU-MYLANLABS-2020M1052687

PATIENT
  Age: 77 Year
  Sex: Male

DRUGS (3)
  1. ZOLEDRONIC ACID [Suspect]
     Active Substance: ZOLEDRONIC ACID
     Dosage: UNK (SECOND LINE)
     Route: 041
     Dates: start: 201809
  2. DOCETAXEL. [Suspect]
     Active Substance: DOCETAXEL
     Indication: PROSTATE CANCER METASTATIC
     Dosage: UNK, CYCLIC (6 CYCLES)
     Route: 065
     Dates: start: 201708
  3. ZOLEDRONIC ACID [Suspect]
     Active Substance: ZOLEDRONIC ACID
     Indication: PROSTATE CANCER METASTATIC
     Dosage: UNK UNK, QMO (FIRST LINE)
     Route: 041
     Dates: start: 201708

REACTIONS (4)
  - Prostate cancer metastatic [Unknown]
  - Product use in unapproved indication [Unknown]
  - Renal impairment [Unknown]
  - Malignant neoplasm progression [Unknown]
